FAERS Safety Report 5139495-7 (Version None)
Quarter: 2006Q4

REPORT INFORMATION
  Report Type: 
  Country: None (occurrence: None)
  Receive Date: 20061024
  Receipt Date: 20061012
  Transmission Date: 20070319
  Serious: Yes (Other)
  Sender: FDA-Public Use
  Company Number: 2006125425

PATIENT

DRUGS (2)
  1. NORVASC [Suspect]
  2. INSULIN (INSULIN) [Concomitant]

REACTIONS (1)
  - CONVULSION [None]
